FAERS Safety Report 25719091 (Version 3)
Quarter: 2025Q3

REPORT INFORMATION
  Report Type: Spontaneous
  Country: US (occurrence: US)
  Receive Date: 20250823
  Receipt Date: 20250901
  Transmission Date: 20251021
  Serious: No
  Sender: ABBVIE
  Company Number: US-ABBVIE-6428201

PATIENT
  Sex: Female

DRUGS (1)
  1. SAPHRIS [Suspect]
     Active Substance: ASENAPINE MALEATE
     Indication: Product used for unknown indication
     Route: 048
     Dates: start: 20230622

REACTIONS (5)
  - Gait disturbance [Unknown]
  - Dysarthria [Unknown]
  - Brain fog [Unknown]
  - Impaired driving ability [Unknown]
  - Physical disability [Unknown]

NARRATIVE: CASE EVENT DATE: 20230623
